FAERS Safety Report 20903601 (Version 2)
Quarter: 2022Q2

REPORT INFORMATION
  Report Type: Spontaneous
  Country: DE (occurrence: DE)
  Receive Date: 20220602
  Receipt Date: 20220606
  Transmission Date: 20220721
  Serious: Yes (Other)
  Sender: FDA-Public Use
  Company Number: DE-CELGENE-DEU-20210906723

PATIENT
  Age: 77 Year
  Sex: Male
  Weight: 71 kg

DRUGS (11)
  1. DEXAMETHASONE [Suspect]
     Active Substance: DEXAMETHASONE
     Indication: Plasma cell myeloma
     Dosage: FREQUENCY TEXT: NOT PROVIDED 20 MILLIGRAM
     Route: 065
     Dates: start: 20210804
  2. DEXAMETHASONE [Suspect]
     Active Substance: DEXAMETHASONE
     Dosage: FREQUENCY TEXT: NOT PROVIDED 20 MILLIGRAM
     Route: 065
     Dates: start: 20210526, end: 20210929
  3. DEXAMETHASONE [Suspect]
     Active Substance: DEXAMETHASONE
     Route: 065
     Dates: start: 20210901
  4. REVLIMID [Suspect]
     Active Substance: LENALIDOMIDE
     Indication: Plasma cell myeloma
     Route: 065
     Dates: start: 20210928
  5. REVLIMID [Suspect]
     Active Substance: LENALIDOMIDE
     Dosage: FREQUENCY TEXT: NOT PROVIDED 10 MILLIGRAM
     Route: 048
     Dates: start: 20210810
  6. REVLIMID [Suspect]
     Active Substance: LENALIDOMIDE
     Route: 065
     Dates: start: 20210907
  7. REVLIMID [Suspect]
     Active Substance: LENALIDOMIDE
     Dosage: FREQUENCY TEXT: NOT PROVIDED 10 MILLIGRAM
     Route: 065
     Dates: start: 20210623
  8. DARATUMUMAB [Suspect]
     Active Substance: DARATUMUMAB
     Indication: Plasma cell myeloma
     Route: 065
     Dates: start: 20210915
  9. DARATUMUMAB [Suspect]
     Active Substance: DARATUMUMAB
     Dosage: FREQUENCY TEXT: NOT PROVIDED 1150 MILLIGRAM
     Route: 065
     Dates: start: 20210623, end: 20210929
  10. DARATUMUMAB [Suspect]
     Active Substance: DARATUMUMAB
     Dosage: FREQUENCY TEXT: NOT PROVIDED 1150 MILLIGRAM
     Route: 065
     Dates: start: 20210804
  11. DARATUMUMAB [Suspect]
     Active Substance: DARATUMUMAB
     Route: 065
     Dates: start: 20210901

REACTIONS (3)
  - Venous thrombosis limb [Recovered/Resolved]
  - Neutropenia [Unknown]
  - Diarrhoea [Recovering/Resolving]

NARRATIVE: CASE EVENT DATE: 20210818
